FAERS Safety Report 13856831 (Version 1)
Quarter: 2017Q3

REPORT INFORMATION
  Report Type: Spontaneous
  Country: US (occurrence: US)
  Receive Date: 20170810
  Receipt Date: 20170810
  Transmission Date: 20171127
  Serious: No
  Sender: FDA-Public Use
  Company Number: US-ROCHE-1394940

PATIENT
  Sex: Female

DRUGS (1)
  1. TAMIFLU [Suspect]
     Active Substance: OSELTAMIVIR PHOSPHATE
     Indication: INFLUENZA
     Dosage: 12 HOURS
     Route: 048
     Dates: start: 201404

REACTIONS (5)
  - Hypersensitivity [Unknown]
  - Hypoaesthesia [Unknown]
  - Pyrexia [Unknown]
  - Dysarthria [Unknown]
  - Tremor [Unknown]
